FAERS Safety Report 10557446 (Version 1)
Quarter: 2014Q4

REPORT INFORMATION
  Report Type: Report from Study
  Country: FR (occurrence: FR)
  Receive Date: 20141031
  Receipt Date: 20141031
  Transmission Date: 20150529
  Serious: Yes (Hospitalization)
  Sender: FDA-Public Use
  Company Number: FR-ELI_LILLY_AND_COMPANY-FR201410007348

PATIENT
  Age: 34 Year
  Sex: Female

DRUGS (13)
  1. P70 S6 KINASE/AKT DUAL INHIBITOR (LY2780301) [Suspect]
     Active Substance: INVESTIGATIONAL PRODUCT
     Indication: METASTATIC NEOPLASM
     Dosage: 500 MG, QD
     Route: 048
     Dates: start: 20141007, end: 20141015
  2. OXYNORM [Concomitant]
     Active Substance: OXYCODONE HYDROCHLORIDE
     Indication: PELVIC PAIN
     Dosage: 20 MG, UNK
     Route: 048
     Dates: start: 201407
  3. SPASFON [Concomitant]
     Active Substance: PHLOROGLUCINOL
     Indication: PAIN
     Dosage: UNK, QD
     Route: 048
     Dates: start: 20140930
  4. ACUPAN [Concomitant]
     Active Substance: NEFOPAM HYDROCHLORIDE
     Indication: PELVIC PAIN
     Dosage: 20 MG, UNK
     Route: 048
     Dates: start: 201407
  5. GEMCITABINE HYDROCHLORIDE. [Suspect]
     Active Substance: GEMCITABINE HYDROCHLORIDE
     Indication: METASTATIC NEOPLASM
     Dosage: 1440 MG, WEEKLY (1/W)
     Route: 042
     Dates: start: 20141007, end: 20141015
  6. PRIMPERAN [Concomitant]
     Active Substance: METOCLOPRAMIDE HYDROCHLORIDE
     Indication: VOMITING
     Dosage: UNK
     Dates: start: 20141008
  7. LYRICA [Concomitant]
     Active Substance: PREGABALIN
     Indication: PELVIC PAIN
     Dosage: 200 MG, QD
     Route: 048
     Dates: start: 201407
  8. PARACETAMOL [Concomitant]
     Active Substance: ACETAMINOPHEN
     Indication: PELVIC PAIN
     Dosage: UNK
     Route: 048
     Dates: start: 201401
  9. IMODIUM [Concomitant]
     Active Substance: LOPERAMIDE HYDROCHLORIDE
     Indication: DIARRHOEA
     Dosage: 2 MG, UNK
     Route: 048
  10. TAVANIC [Concomitant]
     Active Substance: LEVOFLOXACIN
     Indication: URINARY TRACT INFECTION
     Dosage: 1000 MG, QD
     Route: 048
     Dates: start: 20141004
  11. OXYCONTIN [Concomitant]
     Active Substance: OXYCODONE HYDROCHLORIDE
     Indication: PELVIC PAIN
     Dosage: 180 MG, QD
     Route: 048
     Dates: start: 201407
  12. INEXIUM [Concomitant]
     Active Substance: ESOMEPRAZOLE
     Indication: PAIN
     Dosage: 40 MG, QD
     Route: 048
     Dates: start: 201407
  13. AUGMENTIN [Concomitant]
     Active Substance: AMOXICILLIN\CLAVULANATE POTASSIUM
     Indication: URINARY TRACT INFECTION
     Dosage: 3 G, QD
     Route: 048
     Dates: start: 20141008

REACTIONS (1)
  - Intestinal fistula infection [Recovered/Resolved]

NARRATIVE: CASE EVENT DATE: 20141016
